FAERS Safety Report 7243425-1 (Version None)
Quarter: 2011Q1

REPORT INFORMATION
  Report Type: 
  Country: None (occurrence: None)
  Receive Date: 20110114
  Receipt Date: 20101126
  Transmission Date: 20110831
  Serious: Yes (Hospitalization)
  Sender: FDA-Public Use
  Company Number: GER/GER/10/0016806

PATIENT
  Age: 28 Year
  Sex: Female

DRUGS (2)
  1. OLANZAPINE [Suspect]
     Indication: PRODUCT USED FOR UNKNOWN INDICATION
     Dosage: 2000 MG, 1 IN 1 TOTAL
  2. SERTRALINE HYDROCHLORIDE [Suspect]
     Indication: PRODUCT USED FOR UNKNOWN INDICATION
     Dosage: 420 MG, 1 IN 1 TOTAL

REACTIONS (9)
  - PSYCHIATRIC SYMPTOM [None]
  - BLOOD PRESSURE SYSTOLIC INCREASED [None]
  - EXTRAPYRAMIDAL DISORDER [None]
  - CONTINUOUS HAEMODIAFILTRATION [None]
  - NEUROLEPTIC MALIGNANT SYNDROME [None]
  - AUTONOMIC NERVOUS SYSTEM IMBALANCE [None]
  - STAPHYLOCOCCAL INFECTION [None]
  - MULTIPLE DRUG OVERDOSE INTENTIONAL [None]
  - SUICIDE ATTEMPT [None]
